FAERS Safety Report 22186610 (Version 1)
Quarter: 2023Q2

REPORT INFORMATION
  Report Type: Spontaneous
  Country: CO (occurrence: CO)
  Receive Date: 20230407
  Receipt Date: 20230407
  Transmission Date: 20230722
  Serious: Yes (Death, Hospitalization, Other)
  Sender: FDA-Public Use
  Company Number: CO-BAXTER-2023BAX016901

PATIENT
  Age: 83 Year
  Sex: Male
  Weight: 87 kg

DRUGS (14)
  1. DIANEAL PD-2 WITH DEXTROSE [Suspect]
     Active Substance: CALCIUM CHLORIDE\DEXTROSE\MAGNESIUM CHLORIDE\SODIUM CHLORIDE\SODIUM LACTATE
     Indication: Peritoneal dialysis
     Dosage: 6L, 2 BAGS PER DAY
     Route: 033
     Dates: start: 20180512
  2. DIANEAL PD-2 WITH DEXTROSE [Suspect]
     Active Substance: CALCIUM CHLORIDE\DEXTROSE\MAGNESIUM CHLORIDE\SODIUM CHLORIDE\SODIUM LACTATE
     Indication: End stage renal disease
     Dosage: 6L, 2 BAGS PER DAY
     Route: 033
     Dates: start: 20191118, end: 20201020
  3. DIANEAL PD-2 WITH DEXTROSE [Suspect]
     Active Substance: CALCIUM CHLORIDE\DEXTROSE\MAGNESIUM CHLORIDE\SODIUM CHLORIDE\SODIUM LACTATE
     Dosage: 6L, 2 BAGS PER DAY
     Route: 033
     Dates: start: 20221201, end: 20230320
  4. ERYTHROPOIETIN [Concomitant]
     Active Substance: ERYTHROPOIETIN
     Dosage: 1 AMPOULE EVERY 15 DAYS
     Route: 065
     Dates: start: 202302
  5. ATORVASTATIN [Concomitant]
     Active Substance: ATORVASTATIN
     Dosage: 20 MG TAB, 1 TAB EVERY DAY
     Route: 048
  6. FUROSEMIDE [Concomitant]
     Active Substance: FUROSEMIDE
     Dosage: 40 MG, 1 TABLET EVERY 12 HOURS
     Route: 048
  7. CALCITRIOL [Concomitant]
     Active Substance: CALCITRIOL
     Dosage: 0.5 MCG, ORAL 1 TABLET DAILY
     Route: 048
  8. CINACALCET [Concomitant]
     Active Substance: CINACALCET
     Dosage: 30 MG, 3 TABLETS EVERY DAY
     Route: 065
     Dates: start: 202210
  9. ASPIRIN [Concomitant]
     Active Substance: ASPIRIN
     Dosage: 100 MG,1 TABLE DAILY
     Route: 048
  10. LINAGLIPTIN [Concomitant]
     Active Substance: LINAGLIPTIN
     Dosage: 5 MG,1 TABLET EVERY DAY
     Route: 048
  11. LEVOTHYROXINE [Concomitant]
     Active Substance: LEVOTHYROXINE
     Dosage: 75 (UNIT NOT REPORTED) 1 ORAL TABLET EVERY DAY
     Route: 048
     Dates: start: 20220215
  12. ALFUZOSIN [Concomitant]
     Active Substance: ALFUZOSIN
     Dosage: 10 MG, 1 TABLET EVERY DAY
     Route: 065
  13. PSYLLIUM MUCILAGO [Concomitant]
     Dosage: 1 SACHET EVERY OTHER DAY
     Route: 065
  14. GABAPENTIN [Concomitant]
     Active Substance: GABAPENTIN
     Dosage: 400 MG, 1 TABLET EVERY DAY
     Route: 048

REACTIONS (11)
  - Septic shock [Fatal]
  - Urosepsis [Fatal]
  - Urethral obstruction [Unknown]
  - Emphysematous cystitis [Unknown]
  - Escherichia infection [Unknown]
  - Circulatory collapse [Unknown]
  - Respiratory failure [Unknown]
  - Multiple organ dysfunction syndrome [Unknown]
  - Haemodynamic instability [Unknown]
  - Condition aggravated [Unknown]
  - Hypotension [Unknown]

NARRATIVE: CASE EVENT DATE: 20230313
